FAERS Safety Report 11122517 (Version 1)
Quarter: 2015Q2

REPORT INFORMATION
  Report Type: Spontaneous
  Country: US (occurrence: None)
  Receive Date: 20150518
  Receipt Date: 20150518
  Transmission Date: 20150821
  Serious: Yes (Other)
  Sender: FDA-Public Use
  Company Number: None

PATIENT
  Age: 51 Year
  Sex: Female
  Weight: 53.52 kg

DRUGS (1)
  1. LEVOFLOXACIN. [Suspect]
     Active Substance: LEVOFLOXACIN
     Indication: URINARY TRACT INFECTION
     Dosage: 3 PILLS ONCE DAILY TAKEN BY MOUTH
     Route: 048

REACTIONS (2)
  - Malaise [None]
  - Ill-defined disorder [None]

NARRATIVE: CASE EVENT DATE: 20130903
